FAERS Safety Report 8372329-6 (Version None)
Quarter: 2012Q2

REPORT INFORMATION
  Report Type: 
  Country: None (occurrence: None)
  Receive Date: 20120521
  Receipt Date: 20120518
  Transmission Date: 20120825
  Serious: No
  Sender: FDA-Public Use
  Company Number: US-PFIZER INC-2012121443

PATIENT
  Sex: Male
  Weight: 82.086 kg

DRUGS (3)
  1. LANTUS [Concomitant]
     Indication: DIABETES MELLITUS
     Dosage: 9 IU, DAILY AT BED TIME
  2. LYRICA [Suspect]
     Indication: DIABETIC NEUROPATHY
     Dosage: UNK
  3. NOVOLOG [Concomitant]
     Indication: DIABETES MELLITUS
     Dosage: 7 IU AT BREAKFAST, 4 IU AT LUNCH TIME AND 5 IU AT DINNER, 3X/DAY

REACTIONS (1)
  - FEELING ABNORMAL [None]
